FAERS Safety Report 5479015-0 (Version None)
Quarter: 2007Q4

REPORT INFORMATION
  Report Type: 
  Country: None (occurrence: None)
  Receive Date: 20071006
  Receipt Date: 20070925
  Transmission Date: 20080405
  Serious: Yes (Hospitalization, Other)
  Sender: FDA-Public Use
  Company Number: GB-PFIZER INC-2007080394

PATIENT
  Sex: Female
  Weight: 79.545 kg

DRUGS (5)
  1. MISOPROSTOL [Suspect]
     Indication: INTRA-UTERINE DEATH
     Route: 067
     Dates: start: 20070805, end: 20070806
  2. MIFEPRISTONE [Concomitant]
     Dosage: DAILY DOSE:200MG
     Route: 048
  3. AMOXICILLIN [Concomitant]
  4. CEFUROXIME [Concomitant]
  5. METRONIDAZOLE [Concomitant]

REACTIONS (2)
  - DRUG INEFFECTIVE FOR UNAPPROVED INDICATION [None]
  - OFF LABEL USE [None]
